FAERS Safety Report 4337965-2 (Version None)
Quarter: 2004Q2

REPORT INFORMATION
  Report Type: 
  Country: None (occurrence: None)
  Receive Date: 20040413
  Receipt Date: 20040409
  Transmission Date: 20050107
  Serious: Yes (Life-Threatening, Hospitalization, Disabling)
  Sender: FDA-Public Use
  Company Number: US-MERCK-0404USA01092

PATIENT
  Age: 31 Year
  Sex: Male

DRUGS (2)
  1. DARVOCET-N 100 [Concomitant]
     Route: 065
  2. VIOXX [Suspect]
     Indication: LIMB INJURY
     Route: 048
     Dates: end: 20020501

REACTIONS (1)
  - MYOCARDIAL INFARCTION [None]
